FAERS Safety Report 8482788-6 (Version None)
Quarter: 2012Q3

REPORT INFORMATION
  Report Type: 
  Country: None (occurrence: None)
  Receive Date: 20120702
  Receipt Date: 20120627
  Transmission Date: 20120928
  Serious: Yes (Other)
  Sender: FDA-Public Use
  Company Number: PHHY2011FR116678

PATIENT
  Age: 74 Year
  Sex: Female
  Weight: 60 kg

DRUGS (5)
  1. EPINEPHRINE [Concomitant]
     Indication: ANAESTHESIA
  2. FLECAINIDE ACETATE [Suspect]
     Indication: ATRIAL FIBRILLATION
  3. LIDOCAINE [Interacting]
     Dosage: 80 MG, UNK
  4. ANGIOTENSIN CONVERTING ENZYME BLOCKERS [Concomitant]
     Indication: HYPERTROPHIC CARDIOMYOPATHY
  5. LIDOCAINE [Interacting]
     Indication: ANAESTHESIA
     Dosage: 300 MG, UNK

REACTIONS (6)
  - MYOCLONIC EPILEPSY [None]
  - CONFUSIONAL STATE [None]
  - EYE MOVEMENT DISORDER [None]
  - DRUG INTERACTION [None]
  - LOSS OF CONSCIOUSNESS [None]
  - DISORIENTATION [None]
